FAERS Safety Report 16952143 (Version 1)
Quarter: 2019Q4

REPORT INFORMATION
  Report Type: Spontaneous
  Country: US (occurrence: US)
  Receive Date: 20191022
  Receipt Date: 20191022
  Transmission Date: 20200122
  Serious: Yes (Death)
  Sender: FDA-Public Use
  Company Number: None

PATIENT
  Age: 49 Year
  Sex: Female

DRUGS (18)
  1. ALBUTEROL AER HFA [Concomitant]
  2. LEVALBUTEROL NEB [Concomitant]
  3. OXYCODONE/APAP TAB 10-325 MG [Concomitant]
  4. HYDROMORPHONE TAB 4 MG [Concomitant]
  5. NYSTATIN SUS 100000 [Concomitant]
  6. CLOTRIMAZOLE LOZ 10 MG [Concomitant]
  7. ENOXAPARIN INJ 80/0.8 ML [Concomitant]
  8. FUROSEMIDE TAB 20 MG [Concomitant]
  9. PREDNISONE TAB 10 MG [Concomitant]
  10. XARELTO TAB 15 MG [Concomitant]
  11. HALAVEN [Suspect]
     Active Substance: ERIBULIN MESYLATE
     Indication: BREAST CANCER FEMALE
     Dosage: ?          OTHER FREQUENCY:ON DAY 1 AND DAY 8;?
     Route: 042
     Dates: start: 20190805, end: 20191021
  12. FENTAYL DIS [Concomitant]
  13. OMEPRAZOLE CAP 20 MG [Concomitant]
  14. POT CHLORIDE TAB 20 MEQ ER [Concomitant]
  15. SMZ/TMP DS TAB 800-160 [Concomitant]
     Active Substance: SULFAMETHOXAZOLE\TRIMETHOPRIM
  16. GABAPENTIN CAP N300 MG [Concomitant]
  17. NITROFURANTIN CAP 100 MG [Concomitant]
  18. WIXELA INHUB AER 250/50 [Concomitant]

REACTIONS (1)
  - Death [None]
